FAERS Safety Report 6905721-4 (Version None)
Quarter: 2010Q3

REPORT INFORMATION
  Report Type: 
  Country: None (occurrence: None)
  Receive Date: 20100804
  Receipt Date: 20100727
  Transmission Date: 20110219
  Serious: Yes (Other)
  Sender: FDA-Public Use
  Company Number: US-WYE-H16522210

PATIENT
  Sex: Male

DRUGS (15)
  1. MYLOTARG [Suspect]
     Indication: ACUTE MYELOID LEUKAEMIA
     Dosage: 15MG AT UNKNOWN FREQUENCY
     Route: 042
     Dates: start: 20090801, end: 20090101
  2. MYLOTARG [Suspect]
     Dosage: 15MG AT UNKNOWN FREQUENCY (AT LEAST TWO COURSES COMPLETED)
     Route: 042
     Dates: start: 20100101, end: 20100101
  3. MYLOTARG [Suspect]
     Dosage: 15MG AT UNKNOWN FREQUENCY
     Route: 042
     Dates: start: 20100101, end: 20100101
  4. METOPROLOL [Concomitant]
     Dosage: UNKNOWN
  5. DOCUSATE [Concomitant]
     Dosage: UNKNOWN
  6. POTASSIUM CHLORIDE [Concomitant]
     Dosage: UNKNOWN
  7. VANCOMYCIN [Concomitant]
     Dosage: UNKNOWN
  8. HEPARIN [Concomitant]
     Indication: INDWELLING CATHETER MANAGEMENT
     Dosage: UNKNOWN DOSE TO FLUSH CENTRAL LINE
     Route: 040
  9. DULCOLAX [Concomitant]
     Dosage: UNKNOWN
  10. FLEXERIL [Concomitant]
     Dosage: UNKNOWN
  11. ATIVAN [Concomitant]
     Dosage: UNKNOWN
  12. ZOFRAN [Concomitant]
     Dosage: UNKNOWN
  13. SENNA [Concomitant]
     Dosage: UNKNOWN DOSE AS NEEDED
  14. LISINOPRIL [Concomitant]
  15. ACETAMINOPHEN [Concomitant]
     Dosage: UNKNOWN

REACTIONS (2)
  - DISEASE PROGRESSION [None]
  - RESPIRATORY TRACT INFECTION FUNGAL [None]
